FAERS Safety Report 19463304 (Version 1)
Quarter: 2021Q2

REPORT INFORMATION
  Report Type: Report from Study
  Country: GB (occurrence: IE)
  Receive Date: 20210625
  Receipt Date: 20210625
  Transmission Date: 20210717
  Serious: Yes (Hospitalization, Disabling)
  Sender: FDA-Public Use
  Company Number: GB-REGENERON PHARMACEUTICALS, INC.-2020-47429

PATIENT

DRUGS (17)
  1. EYLEA [Suspect]
     Active Substance: AFLIBERCEPT
     Dosage: 50 ?L Q12WK, IN THE RIGHT EYE
     Route: 031
     Dates: start: 20201217, end: 20201217
  2. EYLEA [Suspect]
     Active Substance: AFLIBERCEPT
     Dosage: 50 ?L, ONCE, RIGHT EYE
     Route: 031
     Dates: start: 20210311, end: 20210311
  3. ASPIRIN                            /00002701/ [Concomitant]
     Active Substance: ASPIRIN
     Indication: HYPERTENSION
     Dosage: 75 MG
     Dates: end: 20200707
  4. ISOSORBIDE MONONITRATE. [Concomitant]
     Active Substance: ISOSORBIDE MONONITRATE
     Dosage: 30 MG
     Dates: start: 20200706
  5. BISOPROLOL [Concomitant]
     Active Substance: BISOPROLOL
     Indication: HYPERTENSION
     Dosage: 5 MG
  6. ESOMEPRAZOLE. [Concomitant]
     Active Substance: ESOMEPRAZOLE MAGNESIUM
     Indication: PROPHYLAXIS
     Dosage: 40 MG
     Dates: end: 202009
  7. ASPIRIN                            /00002701/ [Concomitant]
     Active Substance: ASPIRIN
     Dosage: 75 MG
     Dates: start: 20200714
  8. GLICLAZIDE MR STADA [Concomitant]
     Indication: TYPE 2 DIABETES MELLITUS
     Dosage: DAILY DOSE 60 MMG
     Dates: start: 202009
  9. EYLEA [Suspect]
     Active Substance: AFLIBERCEPT
     Dosage: 50 ?L, Q4WK, RIGHT EYE
     Route: 031
     Dates: start: 20200514, end: 20200514
  10. EYLEA [Suspect]
     Active Substance: AFLIBERCEPT
     Dosage: 50 ?L, Q10WK, RIGHT EYE
     Route: 031
     Dates: start: 20201008, end: 20201008
  11. ISOSORBIDE MONONITRATE. [Concomitant]
     Active Substance: ISOSORBIDE MONONITRATE
     Indication: HYPERTENSION
     Dosage: 60 MG
     Dates: start: 20200705, end: 20200705
  12. ESOMEPRAZOLE. [Concomitant]
     Active Substance: ESOMEPRAZOLE MAGNESIUM
     Dosage: DAILY DOSE 20 MG
     Dates: start: 202009
  13. EYLEA [Suspect]
     Active Substance: AFLIBERCEPT
     Indication: NEOVASCULAR AGE-RELATED MACULAR DEGENERATION
     Dosage: 50 ?L, Q4WK, RIGHT EYE
     Route: 031
     Dates: start: 20200416, end: 20200416
  14. EYLEA [Suspect]
     Active Substance: AFLIBERCEPT
     Dosage: 50 ?L, Q8WK, RIGHT EYE
     Route: 031
     Dates: start: 20200813, end: 20200813
  15. ATORVASTATIN [Concomitant]
     Active Substance: ATORVASTATIN
     Indication: HYPERTENSION
     Dosage: 40 MG
  16. EYLEA [Suspect]
     Active Substance: AFLIBERCEPT
     Dosage: 50 ?L, Q4WK, RIGHT EYE,
     Route: 031
     Dates: start: 20200625, end: 20200625
  17. TAMSULOSIN [Concomitant]
     Active Substance: TAMSULOSIN
     Indication: PROSTATIC DISORDER
     Dosage: DAILY DOSE 400 MICROGRAM

REACTIONS (4)
  - Pemphigoid [Recovered/Resolved]
  - Pemphigoid [Not Recovered/Not Resolved]
  - Streptococcal bacteraemia [Recovered/Resolved]
  - Fall [Recovered/Resolved]

NARRATIVE: CASE EVENT DATE: 20200528
